FAERS Safety Report 7375201-3 (Version None)
Quarter: 2011Q1

REPORT INFORMATION
  Report Type: 
  Country: None (occurrence: None)
  Receive Date: 20110325
  Receipt Date: 20110314
  Transmission Date: 20110831
  Serious: Yes (Hospitalization)
  Sender: FDA-Public Use
  Company Number: US-ELI_LILLY_AND_COMPANY-US200908006048

PATIENT
  Sex: Female

DRUGS (13)
  1. CRESTOR [Concomitant]
     Dosage: 10 MG, DAILY (1/D)
  2. FORTEO [Suspect]
     Indication: OSTEOPOROSIS
     Dosage: 20 UG, DAILY (1/D)
     Dates: start: 20090701
  3. STOOL SOFTENER [Concomitant]
     Dosage: UNK, 2/D
  4. COUMADIN [Concomitant]
     Dosage: 7.5 ONCE A DAY AND VARIES
  5. QUINAPRIL [Concomitant]
     Dosage: 10 MG, DAILY (1/D)
  6. NOVOLOG [Concomitant]
     Dosage: 40 UNITS IN AM AND 34UNITS IN PM
  7. TYLENOL (CAPLET) [Concomitant]
     Dosage: UNK, 3/D
  8. LASIX [Concomitant]
     Dosage: 20 MG, DAILY (1/D)
  9. EXELON [Concomitant]
     Dosage: 6 MG, 2/D
  10. NEURONTIN [Concomitant]
     Dosage: 200 MG, DAILY (1/D)
  11. SINGULAIR [Concomitant]
     Dosage: 10 MG, AS NEEDED
  12. NAMENDA [Concomitant]
     Dosage: 10 MG, 2/D
  13. LEXAPRO [Concomitant]
     Dosage: 20 MG, DAILY (1/D)

REACTIONS (9)
  - INJECTION SITE ERYTHEMA [None]
  - EPISTAXIS [None]
  - CONSTIPATION [None]
  - BLOOD URINE PRESENT [None]
  - HAEMOPTYSIS [None]
  - UPPER LIMB FRACTURE [None]
  - JOINT RANGE OF MOTION DECREASED [None]
  - NEPHROLITHIASIS [None]
  - CONTUSION [None]
